FAERS Safety Report 7796622-0 (Version None)
Quarter: 2011Q4

REPORT INFORMATION
  Report Type: 
  Country: None (occurrence: None)
  Receive Date: 20111005
  Receipt Date: 20100301
  Transmission Date: 20120403
  Serious: Yes (Hospitalization)
  Sender: FDA-Public Use
  Company Number: DE-RANBAXY-2010US-45942

PATIENT
  Sex: Female

DRUGS (13)
  1. TEGRETOL [Suspect]
     Indication: CONVULSION PROPHYLAXIS
     Dosage: 400 MG, HALF OR ONE TABLET A DAY
     Route: 048
     Dates: start: 20060906
  2. KALINOR [Concomitant]
     Indication: PRODUCT USED FOR UNKNOWN INDICATION
     Route: 065
  3. DEXAMETHASONE [Suspect]
     Dosage: 8 MG, QID
     Route: 048
  4. NITRAZEPAM [Concomitant]
     Indication: PRODUCT USED FOR UNKNOWN INDICATION
     Dosage: UNK , UNK
     Route: 065
     Dates: start: 20060912
  5. CONTRAST MEDIA [Concomitant]
     Indication: PRODUCT USED FOR UNKNOWN INDICATION
     Route: 065
  6. ACETAMINOPHEN [Suspect]
     Indication: PAIN
     Dosage: 500 MG, AS REQUIRED
     Route: 048
     Dates: start: 20060927
  7. DEXAMETHASONE [Suspect]
     Indication: PROPHYLAXIS
     Dosage: 8 MG, QD (1 IN 1 DAY)
     Route: 048
     Dates: start: 20060902
  8. CALCIUM CARBONATE [Concomitant]
     Indication: PRODUCT USED FOR UNKNOWN INDICATION
     Route: 065
     Dates: start: 20060918
  9. PANTOPRAZOLE [Suspect]
     Indication: PROPHYLAXIS AGAINST GASTROINTESTINAL ULCER
     Dosage: UNK , 1 IN 1 DAY
     Route: 048
     Dates: start: 20060902
  10. NOVAMINSULFON [Suspect]
     Indication: PAIN
     Dosage: 30 UNK, AS REQUIRED
     Route: 048
     Dates: start: 20060926
  11. DEXAMETHASONE [Suspect]
     Dosage: 6 MG, QID
     Route: 048
  12. ENOXAPARIN SODIUM [Concomitant]
     Indication: PRODUCT USED FOR UNKNOWN INDICATION
     Dosage: 40 MG, UNK
     Route: 065
     Dates: start: 20060905
  13. SPIROLINA [Concomitant]
     Indication: PRODUCT USED FOR UNKNOWN INDICATION
     Route: 065

REACTIONS (1)
  - STEVENS-JOHNSON SYNDROME [None]
